FAERS Safety Report 14183939 (Version 1)
Quarter: 2017Q4

REPORT INFORMATION
  Report Type: Report from Study
  Country: CN (occurrence: CN)
  Receive Date: 20171113
  Receipt Date: 20171113
  Transmission Date: 20180321
  Serious: Yes (Other)
  Sender: FDA-Public Use
  Company Number: CN-MYLANLABS-2017M1070195

PATIENT
  Age: 52 Year
  Sex: Female

DRUGS (12)
  1. CYTARABINE. [Suspect]
     Active Substance: CYTARABINE
     Dosage: 1.5G ON DAY 1-2 (R-IVAC REGIMEN)
     Route: 065
  2. VINCRISTINE [Suspect]
     Active Substance: VINCRISTINE
     Indication: LYMPHOMA
     Dosage: 2MG ON DAY 1 AND ON DAY 8 (R-CODOX-M REGIMEN)
     Route: 065
  3. CYTARABINE. [Suspect]
     Active Substance: CYTARABINE
     Indication: LYMPHOMA
     Dosage: 70MG, ADMINISTERED TWICE (R-CODOX-M REGIMEN)
     Route: 037
  4. METHOTREXATE. [Suspect]
     Active Substance: METHOTREXATE
     Indication: LYMPHOMA
     Dosage: ON DAY10, CONTINUOUS INFUSION OVER 23 HOURS (R-CODOX-M REGIMEN)
     Route: 041
  5. RITUXIMAB. [Suspect]
     Active Substance: RITUXIMAB
     Indication: LYMPHOMA
     Dosage: 600MG ON DAY 0 (R-CODOX-M REGIMEN)
     Route: 065
  6. DOXORUBICIN [Suspect]
     Active Substance: DOXORUBICIN
     Indication: LYMPHOMA
     Dosage: 60MG ON DAY 1 (R-CODOX-M REGIMEN)
     Route: 065
  7. IFOSFAMIDE. [Suspect]
     Active Substance: IFOSFAMIDE
     Indication: LYMPHOMA
     Dosage: ON DAY 1-5 (R-IVAC REGIMEN)
     Route: 065
  8. CYTARABINE. [Suspect]
     Active Substance: CYTARABINE
     Indication: LYMPHOMA
     Dosage: 60MG ON DAY 1-5 (R-IVAC REGIMEN)
     Route: 065
  9. METHOTREXATE. [Suspect]
     Active Substance: METHOTREXATE
     Indication: LYMPHOMA
     Dosage: 12MG WITH R-IVAC REGIMEN; AND LATER WITH BOTH R-CODOX-M AND R-IVAC REGIMENS
     Route: 037
  10. CYCLOPHOSPHAMIDE. [Suspect]
     Active Substance: CYCLOPHOSPHAMIDE
     Indication: LYMPHOMA
     Dosage: ON DAY 1-2 (R-CODOX-M REGIMEN)
     Route: 065
  11. DEXAMETHASONE. [Suspect]
     Active Substance: DEXAMETHASONE
     Indication: LYMPHOMA
     Dosage: 5MG, ADMINISTERED TWICE WITH R-CODOX-M REGIMEN; AND LATER WITH R-IVAC REGIMEN
     Route: 037
  12. MESNA. [Suspect]
     Active Substance: MESNA
     Indication: LYMPHOMA
     Dosage: INITIALLY GIVEN WITH R-CODOX-M REGIMEN, AND LATER WITH R-IVAC REGIMEN
     Route: 065

REACTIONS (7)
  - Granulocytopenia [Unknown]
  - Thrombocytopenia [Unknown]
  - Leukopenia [Unknown]
  - Hypoaesthesia [Unknown]
  - Pyrexia [Unknown]
  - Dyskinesia [Unknown]
  - Dysphoria [Unknown]
